FAERS Safety Report 18714821 (Version 1)
Quarter: 2021Q1

REPORT INFORMATION
  Report Type: Spontaneous
  Country: US (occurrence: US)
  Receive Date: 20210107
  Receipt Date: 20210107
  Transmission Date: 20210419
  Serious: Yes (Other)
  Sender: FDA-Public Use
  Company Number: US-APOTEX-2021AP000039

PATIENT
  Age: 48 Year
  Sex: Female

DRUGS (2)
  1. GABAPENTIN. [Suspect]
     Active Substance: GABAPENTIN
     Indication: PRODUCT USED FOR UNKNOWN INDICATION
     Dosage: 800 MILLIGRAM, TID
     Route: 065
  2. GABAPENTIN. [Suspect]
     Active Substance: GABAPENTIN
     Dosage: 100 MILLIGRAM, Q.H.S.
     Route: 048

REACTIONS (5)
  - Toxicity to various agents [Unknown]
  - Confusional state [Recovering/Resolving]
  - Seizure [Recovering/Resolving]
  - Hypertensive emergency [Recovering/Resolving]
  - Fall [Recovering/Resolving]
